FAERS Safety Report 4519224-8 (Version None)
Quarter: 2004Q4

REPORT INFORMATION
  Report Type: 
  Country: None (occurrence: None)
  Receive Date: 20041201
  Receipt Date: 20041115
  Transmission Date: 20050328
  Serious: Yes (Life-Threatening, Hospitalization)
  Sender: FDA-Public Use
  Company Number: 8008133

PATIENT
  Age: 24 Year
  Sex: Male

DRUGS (5)
  1. KEPPRA [Suspect]
     Indication: EPILEPSY
     Dosage: 250MG/D PO
     Route: 048
     Dates: end: 20040926
  2. KEPPRA [Suspect]
     Indication: EPILEPSY
     Dosage: 250MG 2/D PO
     Route: 048
     Dates: start: 20040927, end: 20041001
  3. EPILIM [Concomitant]
  4. CLOABZAM [Concomitant]
  5. SABRIL [Concomitant]
     Route: 023

REACTIONS (1)
  - STATUS EPILEPTICUS [None]
